FAERS Safety Report 4382585-7 (Version None)
Quarter: 2004Q2

REPORT INFORMATION
  Report Type: 
  Country: None (occurrence: None)
  Receive Date: 20040622
  Receipt Date: 20040525
  Transmission Date: 20050107
  Serious: Yes (Life-Threatening, Hospitalization, Other)
  Sender: FDA-Public Use
  Company Number: US-MERCK-0405USA01893

PATIENT
  Age: 79 Year
  Sex: Female

DRUGS (5)
  1. SERZONE [Suspect]
     Route: 065
  2. ZOCOR [Suspect]
     Indication: BLOOD CHOLESTEROL INCREASED
     Route: 048
     Dates: start: 20030101, end: 20040301
  3. ZOCOR [Suspect]
     Route: 048
     Dates: start: 20040101, end: 20040401
  4. ZOCOR [Suspect]
     Indication: CORONARY ARTERY DISEASE
     Route: 048
     Dates: start: 20030101, end: 20040301
  5. ZOCOR [Suspect]
     Route: 048
     Dates: start: 20040101, end: 20040401

REACTIONS (5)
  - CEREBROVASCULAR ACCIDENT [None]
  - DRUG INTERACTION [None]
  - MYOCARDIAL INFARCTION [None]
  - RENAL FAILURE [None]
  - RHABDOMYOLYSIS [None]
